FAERS Safety Report 8184947-9 (Version None)
Quarter: 2012Q1

REPORT INFORMATION
  Report Type: 
  Country: None (occurrence: None)
  Receive Date: 20120305
  Receipt Date: 20120227
  Transmission Date: 20120608
  Serious: Yes (Hospitalization)
  Sender: FDA-Public Use
  Company Number: PT-GLAXOSMITHKLINE-B0768856A

PATIENT
  Age: 47 Year
  Sex: Male

DRUGS (5)
  1. OMEPRAZOLE [Concomitant]
  2. INDAPAMIDE [Concomitant]
  3. GABAPENTIN [Concomitant]
  4. VALACICLOVIR [Suspect]
     Indication: HERPES ZOSTER
     Route: 065
  5. FOSINOPRIL SODIUM [Concomitant]

REACTIONS (16)
  - DECREASED APPETITE [None]
  - ABDOMINAL PAIN [None]
  - CHEST PAIN [None]
  - DIARRHOEA [None]
  - DEHYDRATION [None]
  - PSEUDOMEMBRANOUS COLITIS [None]
  - OEDEMA PERIPHERAL [None]
  - NEUTROPHILIA [None]
  - OESOPHAGEAL CANDIDIASIS [None]
  - CACHEXIA [None]
  - LEUKOCYTOSIS [None]
  - FAECES DISCOLOURED [None]
  - DYSPHAGIA [None]
  - OEDEMA [None]
  - PYREXIA [None]
  - ABDOMINAL DISTENSION [None]
